FAERS Safety Report 13636814 (Version 1)
Quarter: 2017Q2

REPORT INFORMATION
  Report Type: Spontaneous
  Country: US (occurrence: US)
  Receive Date: 20170531
  Receipt Date: 20170531
  Transmission Date: 20170830
  Serious: No
  Sender: FDA-Public Use
  Company Number: US-ASTELLAS-1853008

PATIENT
  Sex: Female
  Weight: 68.1 kg

DRUGS (6)
  1. TARCEVA [Suspect]
     Active Substance: ERLOTINIB HYDROCHLORIDE
     Indication: LUNG NEOPLASM MALIGNANT
     Dosage: ONLY FOR SHORT TIME BEFORE DECREASED
     Route: 048
  2. TARCEVA [Suspect]
     Active Substance: ERLOTINIB HYDROCHLORIDE
     Dosage: TOOK FOR 5 YEARS
     Route: 048
  3. ALIMTA [Concomitant]
     Active Substance: PEMETREXED DISODIUM
     Indication: CHEMOTHERAPY
     Dosage: 4 CYCLES OVER 3 MONTHS, WITH CARBOPLAT;
     Route: 065
     Dates: start: 2016, end: 2016
  4. TAGRISSO [Concomitant]
     Active Substance: OSIMERTINIB
     Indication: LUNG NEOPLASM MALIGNANT
     Dosage: TOOK FOR 4.5 MONTHS
     Route: 048
  5. ALIMTA [Concomitant]
     Active Substance: PEMETREXED DISODIUM
     Dosage: THEN 2 MONTHS ON MAINTENANCE
     Route: 065
     Dates: start: 2016, end: 2016
  6. CARBOPLATIN. [Concomitant]
     Active Substance: CARBOPLATIN
     Indication: CHEMOTHERAPY
     Dosage: 4 CYCLES OVER 3 MONTHS
     Route: 065
     Dates: start: 2016, end: 2016

REACTIONS (5)
  - Eye disorder [Recovered/Resolved]
  - Nail disorder [Recovered/Resolved]
  - Visual impairment [Recovered/Resolved]
  - Diarrhoea [Recovered/Resolved]
  - Gastrointestinal disorder [Recovered/Resolved]
